FAERS Safety Report 9412424 (Version 1)
Quarter: 2013Q3

REPORT INFORMATION
  Report Type: Spontaneous
  Country: US (occurrence: US)
  Receive Date: 20130722
  Receipt Date: 20130722
  Transmission Date: 20140515
  Serious: Yes (Hospitalization, Congenital Anomaly)
  Sender: FDA-Public Use
  Company Number: US-ELI_LILLY_AND_COMPANY-US201307003982

PATIENT
  Sex: 0

DRUGS (4)
  1. CYMBALTA [Suspect]
     Indication: DEPRESSION
     Dosage: 60 MG, BID
     Route: 064
  2. CYMBALTA [Suspect]
     Indication: DEPRESSION
     Dosage: 60 MG, BID
     Route: 064
  3. BUPIVACAINE W/EPINEPHRINE [Concomitant]
     Dosage: UNK, UNKNOWN
     Route: 065
  4. BUPIVACAINE W/EPINEPHRINE [Concomitant]
     Dosage: UNK, UNKNOWN
     Route: 065

REACTIONS (11)
  - Cleft palate [Unknown]
  - Cleft lip [Unknown]
  - Pertussis [Unknown]
  - Bradycardia [Recovered/Resolved]
  - Oxygen saturation decreased [Recovered/Resolved]
  - Hypertension [Recovered/Resolved]
  - Wound dehiscence [Unknown]
  - Foetal exposure during pregnancy [Unknown]
  - Neonatal respiratory distress syndrome [Unknown]
  - Anaemia [Unknown]
  - Pyrexia [Unknown]
